FAERS Safety Report 12372980 (Version 2)
Quarter: 2016Q2

REPORT INFORMATION
  Report Type: Report from Study
  Country: KR (occurrence: KR)
  Receive Date: 20160516
  Receipt Date: 20160602
  Transmission Date: 20160815
  Serious: Yes (Hospitalization)
  Sender: FDA-Public Use
  Company Number: KR-SA-2016SA091553

PATIENT
  Age: 35 Year
  Sex: Male

DRUGS (2)
  1. LEMTRADA [Suspect]
     Active Substance: ALEMTUZUMAB
     Indication: RELAPSING-REMITTING MULTIPLE SCLEROSIS
     Route: 041
     Dates: start: 20160502, end: 20160506
  2. AUBAGIO [Concomitant]
     Active Substance: TERIFLUNOMIDE
     Route: 048
     Dates: start: 20150420, end: 20160502

REACTIONS (7)
  - Asthenia [Recovered/Resolved with Sequelae]
  - Immune thrombocytopenic purpura [Recovered/Resolved]
  - Hypokalaemia [Recovered/Resolved]
  - Pyrexia [Unknown]
  - Gait disturbance [Recovered/Resolved with Sequelae]
  - Contusion [Unknown]
  - Platelet count decreased [Recovered/Resolved]

NARRATIVE: CASE EVENT DATE: 201605
